FAERS Safety Report 5227958-5 (Version None)
Quarter: 2007Q1

REPORT INFORMATION
  Report Type: 
  Country: None (occurrence: None)
  Receive Date: 20061201
  Receipt Date: 20060627
  Transmission Date: 20070707
  Serious: Yes (Other)
  Sender: FDA-Public Use
  Company Number: 2006-144746-NL

PATIENT
  Age: 32 Year
  Sex: Female
  Weight: 50.8 kg

DRUGS (1)
  1. NUVARING [Suspect]
     Indication: CONTRACEPTION
     Dosage: VAGINAL, 3 WEEKS IN, 1 WEEK OUT
     Route: 067
     Dates: start: 20030801, end: 20060621

REACTIONS (5)
  - CHILLS [None]
  - PYREXIA [None]
  - VAGINAL DISCHARGE [None]
  - VAGINAL LESION [None]
  - VAGINAL ULCERATION [None]
